FAERS Safety Report 8801567 (Version 3)
Quarter: 2012Q4

REPORT INFORMATION
  Report Type: 
  Country: US (occurrence: US)
  Receive Date: 20120921
  Receipt Date: 20121207
  Transmission Date: 20130627
  Serious: Yes (Hospitalization)
  Sender: FDA-Public Use
  Company Number: US-B.I. PHARMACEUTICALS,INC./RIDGEFIELD-2012-BP-22943BP

PATIENT
  Age: 58 None
  Sex: Male
  Weight: 75.75 kg

DRUGS (10)
  1. SPIRIVA [Suspect]
     Indication: CHRONIC OBSTRUCTIVE PULMONARY DISEASE
     Dosage: 18 mcg
     Route: 055
  2. ZANTAC (RANITIDINE HYDROCHLORIDE) [Suspect]
  3. DEXILANT [Concomitant]
     Indication: GASTROOESOPHAGEAL REFLUX DISEASE
  4. PRAVACHOL [Concomitant]
     Indication: HYPERLIPIDAEMIA
  5. HYZAAR [Concomitant]
     Indication: HYPERTENSION
  6. NEURONTIN [Concomitant]
     Indication: PAIN
     Dosage: 2400 mg
  7. PERCOCET [Concomitant]
     Indication: PAIN
  8. K-DUR [Concomitant]
     Indication: HYPOKALAEMIA
     Dosage: 40 mg
     Dates: start: 20120920
  9. XANAX [Concomitant]
     Indication: ANXIETY
     Dosage: 2 mg
  10. FLEXERIL [Concomitant]
     Indication: PAIN
     Dosage: 20 mg

REACTIONS (6)
  - Oedema peripheral [Recovered/Resolved]
  - Loss of consciousness [Recovered/Resolved]
  - Confusional state [Recovered/Resolved]
  - Hypokalaemia [Unknown]
  - Asthenia [Not Recovered/Not Resolved]
  - Pain in extremity [Not Recovered/Not Resolved]
